FAERS Safety Report 20344103 (Version 8)
Quarter: 2022Q4

REPORT INFORMATION
  Report Type: Report from Study
  Country: DE (occurrence: None)
  Receive Date: 20220118
  Receipt Date: 20221116
  Transmission Date: 20230112
  Serious: Yes (Hospitalization)
  Sender: FDA-Public Use
  Company Number: DE-ROCHE-2999344

PATIENT
  Age: 40 Year
  Sex: Female
  Weight: 60 kg

DRUGS (8)
  1. ATEZOLIZUMAB [Suspect]
     Active Substance: ATEZOLIZUMAB
     Indication: Triple negative breast cancer
     Dosage: DATE OF LAST DOSE PRIOR TO SAE: 11/NOV/2021?DATE OF LAST DOSE PRIOR TO SAE: 02/DEC/2021?ON 23/DEC/20
     Route: 041
     Dates: start: 20210909
  2. PACLITAXEL [Suspect]
     Active Substance: PACLITAXEL
     Indication: Triple negative breast cancer
     Dosage: DATE OF LAST DOSE PRIOR TO SAE 18/NOV/2021
     Route: 042
     Dates: start: 20210909
  3. CARBOPLATIN [Suspect]
     Active Substance: CARBOPLATIN
     Indication: Triple negative breast cancer
     Dosage: DATE OF LAST DOSE PRIOR TO SAE: 18/NOV/2021
     Route: 042
     Dates: start: 20210909
  4. EPIRUBICIN [Suspect]
     Active Substance: EPIRUBICIN
     Indication: Triple negative breast cancer
     Dosage: DATE OF LAST DOSE PRIOR TO SAE: 23/DEC/2021?DATE OF LAST DOSE PRIOR TO SAE: 02/DEC/2021
     Route: 042
     Dates: start: 20211202
  5. CYCLOPHOSPHAMIDE [Suspect]
     Active Substance: CYCLOPHOSPHAMIDE
     Indication: Triple negative breast cancer
     Dosage: DATE OF LAST DOSE PRIOR TO SAE: 23/DEC/2021?DATE OF LAST DOSE PRIOR TO SAE: 02/DEC/2021
     Route: 042
     Dates: start: 20211202
  6. PIPERACILLIN SODIUM\TAZOBACTAM SODIUM [Concomitant]
     Active Substance: PIPERACILLIN SODIUM\TAZOBACTAM SODIUM
     Dates: start: 20211125
  7. TRIAMCINOLONACETONID [Concomitant]
     Dates: start: 20211111, end: 20211214
  8. POTASSIUM [Concomitant]
     Active Substance: POTASSIUM
     Dates: start: 20211209, end: 20211219

REACTIONS (4)
  - Neutropenia [Recovered/Resolved]
  - Vascular device infection [Recovered/Resolved]
  - Pyrexia [Recovered/Resolved]
  - Neutropenia [Recovered/Resolved]

NARRATIVE: CASE EVENT DATE: 20211125
